FAERS Safety Report 21933849 (Version 1)
Quarter: 2023Q1

REPORT INFORMATION
  Report Type: Spontaneous
  Country: US (occurrence: US)
  Receive Date: 20230201
  Receipt Date: 20230201
  Transmission Date: 20230418
  Serious: No
  Sender: FDA-Public Use
  Company Number: US-ViiV Healthcare Limited-90935

PATIENT
  Sex: Female

DRUGS (6)
  1. RILPIVIRINE [Suspect]
     Active Substance: RILPIVIRINE
     Indication: Product used for unknown indication
     Dosage: UNK UNK, Z (600/900 MG, EVERY MONTH)
     Route: 065
     Dates: start: 20220302
  2. RILPIVIRINE [Suspect]
     Active Substance: RILPIVIRINE
     Dosage: UNK UNK, Z (600/900 MG, EVERY MONTH)
     Route: 065
     Dates: start: 20220302
  3. RILPIVIRINE [Suspect]
     Active Substance: RILPIVIRINE
     Dosage: UNK UNK, Z (600/900 MG, EVERY MONTH)
     Route: 065
     Dates: start: 20220302
  4. CABOTEGRAVIR [Suspect]
     Active Substance: CABOTEGRAVIR
     Indication: Product used for unknown indication
     Dosage: UNK UNK, Z (600/900 MG, EVERY MONTH)
     Route: 065
     Dates: start: 20220302
  5. CABOTEGRAVIR [Suspect]
     Active Substance: CABOTEGRAVIR
     Dosage: UNK UNK, Z (600/900 MG, EVERY MONTH)
     Route: 065
     Dates: start: 20220302
  6. CABOTEGRAVIR [Suspect]
     Active Substance: CABOTEGRAVIR
     Dosage: UNK UNK, Z (600/900 MG, EVERY MONTH)
     Route: 065
     Dates: start: 20220302

REACTIONS (1)
  - Drug ineffective [Unknown]
